FAERS Safety Report 19974111 (Version 1)
Quarter: 2021Q4

REPORT INFORMATION
  Report Type: Spontaneous
  Country: US (occurrence: US)
  Receive Date: 20211018
  Receipt Date: 20211018
  Transmission Date: 20220304
  Serious: Yes (Other)
  Sender: FDA-Public Use
  Company Number: None

PATIENT
  Sex: Female

DRUGS (15)
  1. SPRYCEL [Suspect]
     Active Substance: DASATINIB
     Indication: Chronic myeloid leukaemia
     Route: 048
     Dates: start: 20210211, end: 202110
  2. ALLEGRA ALRG TAB [Concomitant]
  3. ASIRIN EC [Concomitant]
  4. GLEEVEC [Concomitant]
     Active Substance: IMATINIB MESYLATE
  5. HYDROXYCHLOR TAB [Concomitant]
  6. HYDROXYZ HCL TAB [Concomitant]
  7. IMATINIB MESYLATE [Concomitant]
     Active Substance: IMATINIB MESYLATE
  8. IRON TAB PLUS [Concomitant]
  9. MULTI VITAMI TAB [Concomitant]
  10. NALTREXONE TAB [Concomitant]
  11. OTEZLA [Concomitant]
     Active Substance: APREMILAST
  12. PROBIOTIC CAP FORMULA [Concomitant]
  13. PROZAC CAP [Concomitant]
  14. RISPERIDONE TAB [Concomitant]
  15. TRAZODONE TAB [Concomitant]

REACTIONS (1)
  - Cardiac failure [None]
